FAERS Safety Report 25647111 (Version 2)
Quarter: 2025Q3

REPORT INFORMATION
  Report Type: Spontaneous
  Country: KR (occurrence: KR)
  Receive Date: 20250806
  Receipt Date: 20250904
  Transmission Date: 20251020
  Serious: Yes (Other)
  Sender: BOEHRINGER INGELHEIM
  Company Number: KR-Komodo Health-a23aa000009Cc5xAAC

PATIENT
  Age: 8 Decade
  Sex: Male

DRUGS (1)
  1. OLODATEROL\TIOTROPIUM [Suspect]
     Active Substance: OLODATEROL\TIOTROPIUM
     Indication: Product used for unknown indication

REACTIONS (3)
  - Small cell lung cancer [Unknown]
  - Overdose [Unknown]
  - Product delivery mechanism issue [Not Recovered/Not Resolved]

NARRATIVE: CASE EVENT DATE: 20241201
